FAERS Safety Report 24964025 (Version 1)
Quarter: 2025Q1

REPORT INFORMATION
  Report Type: Spontaneous
  Country: CN (occurrence: CN)
  Receive Date: 20250213
  Receipt Date: 20250213
  Transmission Date: 20250409
  Serious: Yes (Other)
  Sender: ROCHE
  Company Number: CN-ROCHE-10000201221

PATIENT
  Age: 78 Year
  Sex: Male
  Weight: 62 kg

DRUGS (2)
  1. OSELTAMIVIR PHOSPHATE [Suspect]
     Active Substance: OSELTAMIVIR PHOSPHATE
     Indication: Pyrexia
     Dosage: CAPSULES 1 TABLET
     Route: 048
     Dates: start: 20250115, end: 20250116
  2. OSELTAMIVIR PHOSPHATE [Suspect]
     Active Substance: OSELTAMIVIR PHOSPHATE
     Route: 048

REACTIONS (4)
  - Hallucination [Recovering/Resolving]
  - Restlessness [Recovering/Resolving]
  - Dysphoria [Recovering/Resolving]
  - Agitation [Recovering/Resolving]

NARRATIVE: CASE EVENT DATE: 20250116
